FAERS Safety Report 7750839-X (Version None)
Quarter: 2011Q3

REPORT INFORMATION
  Report Type: 
  Country: None (occurrence: None)
  Receive Date: 20110914
  Receipt Date: 20110907
  Transmission Date: 20111222
  Serious: Yes (Other)
  Sender: FDA-Public Use
  Company Number: US-JNJFOC-20110904541

PATIENT
  Sex: Female
  Weight: 47.9 kg

DRUGS (5)
  1. ANALPRAM HC [Concomitant]
  2. MESALAMINE [Concomitant]
     Route: 048
  3. INFLIXIMAB, RECOMBINANT [Suspect]
     Indication: INFLAMMATORY BOWEL DISEASE
     Route: 042
     Dates: start: 20090129
  4. MIRALAX [Concomitant]
  5. VITAMIN D [Concomitant]

REACTIONS (1)
  - PSORIASIS [None]
